FAERS Safety Report 25809764 (Version 3)
Quarter: 2025Q3

REPORT INFORMATION
  Report Type: Spontaneous
  Country: US (occurrence: US)
  Receive Date: 20250916
  Receipt Date: 20250929
  Transmission Date: 20251020
  Serious: No
  Sender: TRAVERE THERAPEUTICS
  Company Number: US-TRAVERE-2025TVT01160

PATIENT
  Age: 48 Year
  Sex: Male

DRUGS (5)
  1. FILSPARI [Suspect]
     Active Substance: SPARSENTAN
     Indication: IgA nephropathy
     Route: 048
     Dates: start: 202506
  2. FILSPARI [Suspect]
     Active Substance: SPARSENTAN
     Route: 048
     Dates: start: 20250625
  3. NIFEDIPINE [Suspect]
     Active Substance: NIFEDIPINE
     Indication: Product used for unknown indication
  4. NIFEDIPINE [Suspect]
     Active Substance: NIFEDIPINE
  5. METOPROLOL [Suspect]
     Active Substance: METOPROLOL
     Indication: Product used for unknown indication

REACTIONS (7)
  - Tension headache [Recovering/Resolving]
  - Migraine [Unknown]
  - Dizziness [Unknown]
  - Blood pressure fluctuation [None]
  - Heart rate increased [Unknown]
  - Stress [Unknown]
  - Product administration error [Unknown]

NARRATIVE: CASE EVENT DATE: 20250701
